FAERS Safety Report 5534089-3 (Version None)
Quarter: 2007Q4

REPORT INFORMATION
  Report Type: 
  Country: None (occurrence: None)
  Receive Date: 20071129
  Receipt Date: 20071129
  Transmission Date: 20080405
  Serious: Yes (Life-Threatening)
  Sender: FDA-Public Use
  Company Number: None

PATIENT
  Age: 64 Year
  Sex: Female
  Weight: 49.8957 kg

DRUGS (1)
  1. CHANTIX [Suspect]
     Indication: SMOKING CESSATION THERAPY
     Dosage: ONE PILL DAILY PO
     Route: 048
     Dates: start: 20070723, end: 20070809

REACTIONS (5)
  - NAUSEA [None]
  - NIGHT SWEATS [None]
  - SLEEP TERROR [None]
  - SUICIDAL IDEATION [None]
  - VOMITING [None]
